FAERS Safety Report 24797919 (Version 1)
Quarter: 2025Q1

REPORT INFORMATION
  Report Type: Spontaneous
  Country: CN (occurrence: CN)
  Receive Date: 20250102
  Receipt Date: 20250102
  Transmission Date: 20250409
  Serious: Yes (Other)
  Sender: ROCHE
  Company Number: CN-ROCHE-10000170193

PATIENT
  Age: 49 Year
  Sex: Female
  Weight: 52 kg

DRUGS (1)
  1. PERTUZUMAB [Suspect]
     Active Substance: PERTUZUMAB
     Indication: Breast cancer
     Dosage: DOSAGE: 1.000000 BRANCH
     Route: 042
     Dates: start: 20241203, end: 20241203

REACTIONS (3)
  - Hepatic function abnormal [Unknown]
  - Decreased appetite [Unknown]
  - Mental disorder [Unknown]

NARRATIVE: CASE EVENT DATE: 20241203
